FAERS Safety Report 10062556 (Version 1)
Quarter: 2014Q1

REPORT INFORMATION
  Report Type: Spontaneous
  Country: US (occurrence: None)
  Receive Date: 20140314
  Receipt Date: 20140314
  Transmission Date: 20141002
  Serious: Yes (Other)
  Sender: FDA-Public Use
  Company Number: 2013100098

PATIENT
  Sex: Male

DRUGS (1)
  1. OXYMETHOLONE [Suspect]
     Indication: BONE MARROW FAILURE

REACTIONS (2)
  - Hepatotoxicity [None]
  - Drug hypersensitivity [None]
